FAERS Safety Report 8524359-9 (Version None)
Quarter: 2012Q3

REPORT INFORMATION
  Report Type: 
  Country: None (occurrence: None)
  Receive Date: 20120720
  Receipt Date: 20120710
  Transmission Date: 20120928
  Serious: Yes (Hospitalization)
  Sender: FDA-Public Use
  Company Number: US-ABBOTT-12P-163-0955964-00

PATIENT
  Sex: Female
  Weight: 102.15 kg

DRUGS (4)
  1. SPIRIVA [Concomitant]
     Indication: CHRONIC OBSTRUCTIVE PULMONARY DISEASE
  2. HUMIRA [Suspect]
     Indication: PSORIASIS
     Dates: start: 20090101, end: 20111101
  3. PAXIL [Concomitant]
     Indication: SOCIAL PHOBIA
  4. ADVAIR DISKUS 100/50 [Concomitant]
     Indication: CHRONIC OBSTRUCTIVE PULMONARY DISEASE

REACTIONS (1)
  - BLADDER SPHINCTER ATONY [None]
